FAERS Safety Report 11386296 (Version 1)
Quarter: 2015Q3

REPORT INFORMATION
  Report Type: Spontaneous
  Country: US (occurrence: US)
  Receive Date: 20150817
  Receipt Date: 20150817
  Transmission Date: 20151125
  Serious: Yes (Hospitalization, Other)
  Sender: FDA-Public Use
  Company Number: US-AMGEN-USASP2015081481

PATIENT
  Age: 76 Year
  Sex: Female

DRUGS (2)
  1. SENSIPAR [Suspect]
     Active Substance: CINACALCET HYDROCHLORIDE
     Indication: HYPERPARATHYROIDISM
     Dosage: UNK, QD
     Route: 048
  2. TYLENOL [Concomitant]
     Active Substance: ACETAMINOPHEN

REACTIONS (5)
  - Lung neoplasm malignant [Recovered/Resolved]
  - Musculoskeletal injury [Recovering/Resolving]
  - Abasia [Recovering/Resolving]
  - Headache [Recovering/Resolving]
  - Joint injury [Recovering/Resolving]

NARRATIVE: CASE EVENT DATE: 20150809
